FAERS Safety Report 7539617-4 (Version None)
Quarter: 2011Q2

REPORT INFORMATION
  Report Type: 
  Country: None (occurrence: None)
  Receive Date: 20110610
  Receipt Date: 20110608
  Transmission Date: 20111010
  Serious: Yes (Other)
  Sender: FDA-Public Use
  Company Number: JP-PFIZER INC-2011102370

PATIENT
  Sex: Female

DRUGS (6)
  1. CINAL [Concomitant]
  2. LENDORMIN [Concomitant]
  3. JUVELA [Concomitant]
  4. AMLODIPINE [Concomitant]
  5. LIPITOR [Suspect]
     Dosage: 5 MG, 1X/DAY
     Route: 048
  6. ACTONEL [Concomitant]

REACTIONS (1)
  - ANOSMIA [None]
